FAERS Safety Report 5820483-X (Version None)
Quarter: 2008Q3

REPORT INFORMATION
  Report Type: 
  Country: None (occurrence: None)
  Receive Date: 20080724
  Receipt Date: 20070831
  Transmission Date: 20090109
  Serious: No
  Sender: FDA-Public Use
  Company Number: A0669501A

PATIENT
  Age: 72 Year
  Sex: Female

DRUGS (8)
  1. AVANDIA [Suspect]
     Dosage: 8MG PER DAY
     Route: 048
     Dates: start: 20050624, end: 20070524
  2. METFORMIN [Concomitant]
  3. LIPITOR [Concomitant]
  4. LEVOTHYROXINE SODIUM [Concomitant]
  5. PREMARIN [Concomitant]
  6. ASPIRIN [Concomitant]
  7. MULTI-VITAMIN [Concomitant]
  8. CALCIUM [Concomitant]

REACTIONS (1)
  - WEIGHT INCREASED [None]
